FAERS Safety Report 17710184 (Version 1)
Quarter: 2020Q2

REPORT INFORMATION
  Report Type: Spontaneous
  Country: US (occurrence: US)
  Receive Date: 20200424
  Receipt Date: 20200424
  Transmission Date: 20200714
  Serious: Yes (Death)
  Sender: FDA-Public Use
  Company Number: None

PATIENT
  Age: 73 Year
  Sex: Male

DRUGS (1)
  1. ENTECAVIR 0.5MG SOLCO HEALTHCARE [Suspect]
     Active Substance: ENTECAVIR
     Indication: CHRONIC HEPATITIS B
     Route: 048
     Dates: start: 20180801, end: 20200415

REACTIONS (4)
  - Neoplasm malignant [None]
  - Coronavirus infection [None]
  - Pneumonia [None]
  - Influenza [None]

NARRATIVE: CASE EVENT DATE: 20200415
